FAERS Safety Report 6781042-8 (Version None)
Quarter: 2010Q2

REPORT INFORMATION
  Report Type: 
  Country: None (occurrence: None)
  Receive Date: 20100621
  Receipt Date: 20100106
  Transmission Date: 20101027
  Serious: Yes (Other)
  Sender: FDA-Public Use
  Company Number: US-ASTRAZENECA-2008UW07380

PATIENT
  Age: 638 Month
  Sex: Male
  Weight: 90.3 kg

DRUGS (8)
  1. SEROQUEL [Suspect]
     Indication: SLEEP DISORDER
     Route: 048
     Dates: start: 20060322, end: 20070301
  2. SEROQUEL [Suspect]
     Indication: SCHIZOPHRENIA
     Route: 048
     Dates: start: 20060322, end: 20070301
  3. GEODON [Concomitant]
  4. WELLBUTRIN XL [Concomitant]
  5. LOPID [Concomitant]
  6. THORAZINE [Concomitant]
  7. ZYPREXA [Concomitant]
  8. SYMBYAX [Concomitant]

REACTIONS (4)
  - ERECTILE DYSFUNCTION [None]
  - ORGANIC ERECTILE DYSFUNCTION [None]
  - TYPE 2 DIABETES MELLITUS [None]
  - WEIGHT INCREASED [None]
